FAERS Safety Report 8741076 (Version 3)
Quarter: 2015Q2

REPORT INFORMATION
  Report Type: Spontaneous
  Country: US (occurrence: US)
  Receive Date: 20120824
  Receipt Date: 20150612
  Transmission Date: 20150821
  Serious: Yes (Hospitalization)
  Sender: FDA-Public Use
  Company Number: US-ASTRAZENECA-2011SE72600

PATIENT
  Age: 63 Year
  Sex: Female
  Weight: 81.6 kg

DRUGS (6)
  1. ALBUTEROL. [Concomitant]
     Active Substance: ALBUTEROL
     Dosage: PRN
  2. SYMBICORT [Suspect]
     Active Substance: BUDESONIDE\FORMOTEROL FUMARATE DIHYDRATE
     Indication: CHRONIC OBSTRUCTIVE PULMONARY DISEASE
     Dosage: 160/4.5 MCG ONE PUFF BID
     Route: 055
     Dates: start: 20111009, end: 20111125
  3. SYMBICORT [Suspect]
     Active Substance: BUDESONIDE\FORMOTEROL FUMARATE DIHYDRATE
     Indication: CHRONIC OBSTRUCTIVE PULMONARY DISEASE
     Dosage: 160/4.5 MCG ONE PUFF BID
     Route: 055
     Dates: start: 2011
  4. SINGULAIR [Concomitant]
     Active Substance: MONTELUKAST SODIUM
     Indication: CHRONIC OBSTRUCTIVE PULMONARY DISEASE
  5. PREDNISONE. [Suspect]
     Active Substance: PREDNISONE
     Route: 065
     Dates: start: 201501, end: 201501
  6. DUANEB [Concomitant]
     Dosage: UNKNOWN

REACTIONS (14)
  - Incorrect dose administered by device [Unknown]
  - Oxygen saturation decreased [Recovered/Resolved]
  - Sleep disorder due to a general medical condition [Unknown]
  - Influenza [Recovered/Resolved]
  - Sinusitis [Unknown]
  - Hypersensitivity [Unknown]
  - Blood pressure increased [Recovered/Resolved]
  - Hunger [Unknown]
  - Cough [Unknown]
  - Nervousness [Unknown]
  - Dysphonia [Unknown]
  - Palpitations [Recovered/Resolved]
  - Adverse drug reaction [Unknown]
  - Oropharyngeal pain [Unknown]

NARRATIVE: CASE EVENT DATE: 20150125
